FAERS Safety Report 8845479 (Version 1)
Quarter: 2012Q4

REPORT INFORMATION
  Report Type: Spontaneous
  Country: US (occurrence: None)
  Receive Date: 20121015
  Receipt Date: 20121015
  Transmission Date: 20130627
  Serious: Yes (Other)
  Sender: FDA-Public Use
  Company Number: 2012P1060553

PATIENT
  Age: 64 Year
  Sex: Male

DRUGS (10)
  1. CLINDAMYCIN [Suspect]
     Indication: PROPHYLAXIS
     Route: 042
  2. CLINDAMYCIN [Suspect]
     Indication: PROPHYLAXIS
     Route: 042
  3. METHADONE [Concomitant]
  4. DOCUSATE [Concomitant]
  5. GABAPENTIN [Concomitant]
  6. ENOXAPARIN [Concomitant]
  7. ESOMEPRAZOLE [Concomitant]
  8. FENTANYL [Concomitant]
  9. HYDROMORPHONE [Concomitant]
  10. LORAZEPAM [Concomitant]

REACTIONS (4)
  - Neutropenia [None]
  - White blood cell count decreased [None]
  - Wound dehiscence [None]
  - Wound infection [None]
